FAERS Safety Report 6594043-X (Version None)
Quarter: 2010Q1

REPORT INFORMATION
  Report Type: 
  Country: None (occurrence: None)
  Receive Date: 20100222
  Receipt Date: 20091203
  Transmission Date: 20100710
  Serious: Yes (Death, Congenital Anomaly)
  Sender: FDA-Public Use
  Company Number: NO-ASTRAZENECA-2007SE00031

PATIENT
  Age: 0 Day
  Sex: Male
  Weight: 2.1 kg

DRUGS (2)
  1. ATACAND [Suspect]
     Route: 064
     Dates: end: 20061226
  2. NORMORIX MITE [Concomitant]
     Route: 064
     Dates: end: 20061226

REACTIONS (9)
  - ANGIOTENSIN CONVERTING ENZYME INHIBITOR FOETOPATHY [None]
  - CONGENITAL CENTRAL NERVOUS SYSTEM ANOMALY [None]
  - DEFORMITY THORAX [None]
  - PREMATURE BABY [None]
  - PULMONARY HYPOPLASIA [None]
  - RENAL DYSPLASIA [None]
  - RESPIRATORY DISORDER NEONATAL [None]
  - SKULL MALFORMATION [None]
  - SMALL FOR DATES BABY [None]
